FAERS Safety Report 9669711 (Version 1)
Quarter: 2013Q4

REPORT INFORMATION
  Report Type: Spontaneous
  Country: US (occurrence: None)
  Receive Date: 20131104
  Receipt Date: 20131104
  Transmission Date: 20140711
  Serious: No
  Sender: FDA-Public Use
  Company Number: None

PATIENT
  Age: 64 Year
  Sex: Male

DRUGS (16)
  1. HUMIRA [Suspect]
     Indication: ANKYLOSING SPONDYLITIS
     Dosage: 1 PEN SUBCUTANEOUS
     Route: 058
     Dates: start: 20131018
  2. HUMIRA [Concomitant]
  3. PLAVIX [Concomitant]
  4. LISINOPRIL [Concomitant]
  5. METOROLOL [Concomitant]
  6. ATORVASTATIN [Concomitant]
  7. ASPRIN 325MG [Concomitant]
  8. LYRICA [Concomitant]
  9. VITAMIN C-500MG [Concomitant]
  10. METFORMIN 500MG [Concomitant]
  11. INDOMETHACIN [Concomitant]
  12. PROBENECID [Concomitant]
  13. COLCHICINE [Concomitant]
  14. FAMOTIDINE [Concomitant]
  15. PREDNISONE [Concomitant]
  16. ALLOPURINOL [Concomitant]

REACTIONS (2)
  - Myocardial infarction [None]
  - Stent placement [None]
